FAERS Safety Report 4917108-4 (Version None)
Quarter: 2006Q1

REPORT INFORMATION
  Report Type: 
  Country: None (occurrence: None)
  Receive Date: 20060221
  Receipt Date: 20060209
  Transmission Date: 20060701
  Serious: Yes (Disabling)
  Sender: FDA-Public Use
  Company Number: AR-BRISTOL-MYERS SQUIBB COMPANY-13279658

PATIENT
  Sex: Female

DRUGS (3)
  1. HYDREA [Suspect]
     Indication: POLYCYTHAEMIA
     Dates: start: 20051101, end: 20051101
  2. ASPIRIN [Concomitant]
  3. CARVEDILOL [Concomitant]

REACTIONS (4)
  - BLINDNESS [None]
  - DEAFNESS [None]
  - GAIT DISTURBANCE [None]
  - HYPOAESTHESIA [None]
